FAERS Safety Report 4766820-9 (Version None)
Quarter: 2005Q3

REPORT INFORMATION
  Report Type: 
  Country: None (occurrence: None)
  Receive Date: 20050907
  Receipt Date: 20050825
  Transmission Date: 20060218
  Serious: Yes (Life-Threatening, Hospitalization)
  Sender: FDA-Public Use
  Company Number: 216286

PATIENT
  Age: 71 Year
  Sex: Female
  Weight: 47.1 kg

DRUGS (8)
  1. BEVACIZUMAB(BEVACIZUMAB) PWDR + SOLVENT,INFUSION SOLVENT, 100MG [Suspect]
     Indication: OVARIAN CANCER
     Dosage: 15 MG/KG, Q3W, INTRAVENOUS
     Route: 042
     Dates: start: 20050530, end: 20050714
  2. REGLAN [Concomitant]
  3. ZOFRAN [Concomitant]
  4. COZAAR [Concomitant]
  5. MULTI-VITAMINS [Concomitant]
  6. ASPIRIN [Concomitant]
  7. SPIRIVA [Concomitant]
  8. ALBUTEROL (ALBUTEROL, ALBUTEROL SULFATE) [Concomitant]

REACTIONS (22)
  - ABDOMINAL ADHESIONS [None]
  - ABSCESS INTESTINAL [None]
  - ASCITES [None]
  - BLOOD ALBUMIN DECREASED [None]
  - BLOOD PRESSURE SYSTOLIC INCREASED [None]
  - CARDIAC MURMUR [None]
  - CHEST X-RAY ABNORMAL [None]
  - CHILLS [None]
  - DYSPNOEA [None]
  - FLUID RETENTION [None]
  - HAEMATOCRIT DECREASED [None]
  - HAEMOGLOBIN DECREASED [None]
  - INFECTION [None]
  - INTESTINAL ISCHAEMIA [None]
  - METASTATIC NEOPLASM [None]
  - PLATELET COUNT INCREASED [None]
  - PLEURAL RUB [None]
  - RESPIRATORY RATE INCREASED [None]
  - SMALL INTESTINAL OBSTRUCTION [None]
  - SMALL INTESTINAL PERFORATION [None]
  - URINARY RETENTION [None]
  - WEIGHT DECREASED [None]
